FAERS Safety Report 7818115-4 (Version None)
Quarter: 2011Q4

REPORT INFORMATION
  Report Type: 
  Country: None (occurrence: None)
  Receive Date: 20111017
  Receipt Date: 20111004
  Transmission Date: 20120403
  Serious: Yes (Life-Threatening, Hospitalization)
  Sender: FDA-Public Use
  Company Number: AT-SANOFI-AVENTIS-2011SA064341

PATIENT
  Age: 69 Year
  Sex: Female
  Weight: 72 kg

DRUGS (8)
  1. FORTEO [Concomitant]
     Indication: OSTEOPOROSIS
     Route: 058
     Dates: start: 20100601, end: 20110829
  2. MULTAQ [Suspect]
     Indication: ATRIAL FIBRILLATION
     Route: 048
     Dates: start: 20100901, end: 20110829
  3. MARCUMAR [Suspect]
     Indication: ATRIAL FIBRILLATION
     Route: 048
     Dates: start: 20101201, end: 20110829
  4. ALL OTHER THERAPEUTIC PRODUCTS [Concomitant]
     Route: 048
     Dates: end: 20110829
  5. CHONDROSULF [Concomitant]
     Route: 048
     Dates: end: 20110829
  6. ALL OTHER THERAPEUTIC PRODUCTS [Concomitant]
     Route: 048
     Dates: start: 20060101, end: 20110829
  7. LISINOPRIL [Suspect]
     Indication: ATRIAL FIBRILLATION
     Route: 048
     Dates: start: 20100901, end: 20110829
  8. CALVITA [Concomitant]
     Route: 048
     Dates: end: 20110829

REACTIONS (7)
  - JAUNDICE [None]
  - ASTHENIA [None]
  - HEPATOCELLULAR INJURY [None]
  - HEPATITIS [None]
  - ABDOMINAL PAIN [None]
  - MALAISE [None]
  - HEPATIC FAILURE [None]
